FAERS Safety Report 21904896 (Version 2)
Quarter: 2023Q1

REPORT INFORMATION
  Report Type: Spontaneous
  Country: ES (occurrence: ES)
  Receive Date: 20230124
  Receipt Date: 20230329
  Transmission Date: 20230417
  Serious: Yes (Other)
  Sender: FDA-Public Use
  Company Number: ES-002147023-NVSC2023ES013153

PATIENT

DRUGS (1)
  1. ADALIMUMAB [Suspect]
     Active Substance: ADALIMUMAB
     Indication: Behcet^s syndrome
     Dosage: 40 MG, BIW (EVERY OTHER WEEK (EOW) WITHOUT LOADING DOSE)
     Route: 058

REACTIONS (2)
  - Bacterial pyelonephritis [Unknown]
  - Product use in unapproved indication [Unknown]
